FAERS Safety Report 15250303 (Version 1)
Quarter: 2018Q3

REPORT INFORMATION
  Report Type: Spontaneous
  Country: US (occurrence: US)
  Receive Date: 20180716
  Receipt Date: 20180716
  Transmission Date: 20181010
  Serious: Yes (Disabling)
  Sender: FDA-Public Use
  Company Number: None

PATIENT
  Age: 38 Year
  Sex: Female
  Weight: 56.25 kg

DRUGS (1)
  1. SENSODYNE REPAIR AND PROTECT [Suspect]
     Active Substance: STANNOUS FLUORIDE
     Indication: DENTAL DISORDER PROPHYLAXIS
     Route: 061
     Dates: start: 20180705, end: 20180709

REACTIONS (3)
  - Oral pain [None]
  - Oral mucosal exfoliation [None]
  - Tongue ulceration [None]

NARRATIVE: CASE EVENT DATE: 20180705
